FAERS Safety Report 13168720 (Version 1)
Quarter: 2017Q1

REPORT INFORMATION
  Report Type: Spontaneous
  Country: US (occurrence: US)
  Receive Date: 20170131
  Receipt Date: 20170131
  Transmission Date: 20170428
  Serious: Yes (Death)
  Sender: FDA-Public Use
  Company Number: US-ASTRAZENECA-2017SE08521

PATIENT
  Age: 766 Month
  Sex: Male
  Weight: 104.3 kg

DRUGS (9)
  1. AZOR [Concomitant]
     Active Substance: AMLODIPINE BESYLATE\OLMESARTAN MEDOXOMIL
     Indication: BLOOD PRESSURE ABNORMAL
     Dosage: DAILY
  2. CALTRATE CALCIUM PLUS D [Concomitant]
  3. TAMULOSIN HCL [Concomitant]
     Indication: BENIGN PROSTATIC HYPERPLASIA
  4. CRESTOR [Suspect]
     Active Substance: ROSUVASTATIN CALCIUM
     Indication: BLOOD CHOLESTEROL INCREASED
     Route: 048
  5. CERTRALINE HCL [Concomitant]
     Indication: ANXIETY
  6. FLAXSEED [Concomitant]
     Active Substance: FLAX SEED
  7. BUSIERONE HCL [Concomitant]
     Indication: ANXIETY
  8. ASPIRIN. [Concomitant]
     Active Substance: ASPIRIN
     Indication: CARDIAC DISORDER
     Dosage: 162.0UG UNKNOWN
  9. VITAMIN D3 [Concomitant]
     Active Substance: CHOLECALCIFEROL

REACTIONS (1)
  - Non-small cell lung cancer [Fatal]

NARRATIVE: CASE EVENT DATE: 201607
